FAERS Safety Report 16292819 (Version 1)
Quarter: 2019Q2

REPORT INFORMATION
  Report Type: Report from Study
  Country: US (occurrence: US)
  Receive Date: 20190509
  Receipt Date: 20190509
  Transmission Date: 20190711
  Serious: Yes (Hospitalization, Other)
  Sender: FDA-Public Use
  Company Number: US-BAUSCH-BL-2019-013559

PATIENT
  Age: 72 Year
  Sex: Female

DRUGS (1)
  1. XIFAXAN [Suspect]
     Active Substance: RIFAXIMIN
     Indication: AMMONIA INCREASED
     Route: 065

REACTIONS (7)
  - Lethargy [Unknown]
  - Non-alcoholic steatohepatitis [Unknown]
  - Feeling abnormal [Unknown]
  - Condition aggravated [Unknown]
  - Asthenia [Unknown]
  - Inability to afford medication [Unknown]
  - Ammonia increased [Unknown]
